FAERS Safety Report 5511105-6 (Version None)
Quarter: 2007Q4

REPORT INFORMATION
  Report Type: 
  Country: None (occurrence: None)
  Receive Date: 20071107
  Receipt Date: 20071031
  Transmission Date: 20080405
  Serious: Yes (Hospitalization)
  Sender: FDA-Public Use
  Company Number: 2007AL004632

PATIENT
  Age: 30 Year
  Sex: Male

DRUGS (3)
  1. CARISOPRODOL [Suspect]
     Indication: DEPRESSION
     Dosage: X1; PO
     Route: 048
     Dates: start: 20070908, end: 20070908
  2. ALVEDON [Concomitant]
  3. VOLTAREN [Concomitant]

REACTIONS (2)
  - INCORRECT DOSE ADMINISTERED [None]
  - SUICIDE ATTEMPT [None]
